FAERS Safety Report 17955069 (Version 1)
Quarter: 2020Q2

REPORT INFORMATION
  Report Type: Spontaneous
  Country: US (occurrence: US)
  Receive Date: 20200626
  Receipt Date: 20200626
  Transmission Date: 20200714
  Serious: Yes (Hospitalization)
  Sender: FDA-Public Use
  Company Number: None

PATIENT
  Age: 76 Year
  Sex: Male

DRUGS (1)
  1. EMPAGLIFLOZIN (EMPAGLIFLOZIN 10MG TAB) [Suspect]
     Active Substance: EMPAGLIFLOZIN
     Indication: SURGERY
     Route: 048
     Dates: start: 20190507, end: 20200603

REACTIONS (3)
  - Toe amputation [None]
  - Diabetic complication [None]
  - Osteomyelitis [None]

NARRATIVE: CASE EVENT DATE: 20200402
